FAERS Safety Report 21544656 (Version 1)
Quarter: 2022Q4

REPORT INFORMATION
  Report Type: Spontaneous
  Country: US (occurrence: None)
  Receive Date: 20221101
  Receipt Date: 20221101
  Transmission Date: 20230112
  Serious: No
  Sender: FDA-Public Use
  Company Number: None

PATIENT
  Age: 89 Year
  Sex: Female
  Weight: 54 kg

DRUGS (12)
  1. LENALIDOMIDE [Suspect]
     Active Substance: LENALIDOMIDE
     Indication: Myelodysplastic syndrome
     Dosage: FREQUENCY : DAILY;?
     Route: 048
     Dates: start: 20221101
  2. ASPIRIN [Concomitant]
     Active Substance: ASPIRIN
     Dates: start: 20220927
  3. ATORVASTATIN [Concomitant]
     Active Substance: ATORVASTATIN
     Dates: start: 20220927
  4. GABAPENTIN [Concomitant]
     Active Substance: GABAPENTIN
     Dates: start: 20220927
  5. FISH OIL [Concomitant]
     Active Substance: FISH OIL
     Dates: start: 20220927
  6. VITAMIN C [Concomitant]
     Active Substance: ASCORBIC ACID
     Dates: start: 20220927
  7. TEA [Concomitant]
     Active Substance: TEA LEAF
     Dates: start: 20220927
  8. LASIX [Concomitant]
     Active Substance: FUROSEMIDE
     Dates: start: 20220927
  9. METOPROLOL [Concomitant]
     Active Substance: METOPROLOL
     Dates: start: 20220927
  10. MYRBETRIQ [Concomitant]
     Active Substance: MIRABEGRON
     Dates: start: 20220927
  11. PRAMIPEXOLE [Concomitant]
     Active Substance: PRAMIPEXOLE
     Dates: start: 20220927
  12. PRILOSEC [Concomitant]
     Active Substance: OMEPRAZOLE MAGNESIUM
     Dates: start: 20220927

REACTIONS (1)
  - Rectal haemorrhage [None]

NARRATIVE: CASE EVENT DATE: 20221101
